FAERS Safety Report 7597202-2 (Version None)
Quarter: 2011Q3

REPORT INFORMATION
  Report Type: 
  Country: None (occurrence: None)
  Receive Date: 20110708
  Receipt Date: 20100907
  Transmission Date: 20111222
  Serious: No
  Sender: FDA-Public Use
  Company Number: US-GLAXOSMITHKLINE-A0879858A

PATIENT
  Age: 68 Year
  Sex: Male

DRUGS (7)
  1. SINGULAIR [Concomitant]
  2. VITAMIN B [Concomitant]
  3. ASPIRIN [Concomitant]
  4. SPIRIVA [Concomitant]
  5. ALTACE [Concomitant]
  6. ALLEGRA [Concomitant]
  7. FLOVENT [Suspect]
     Indication: CHRONIC OBSTRUCTIVE PULMONARY DISEASE
     Dosage: 2PUFF TWICE PER DAY
     Route: 055
     Dates: start: 20000101

REACTIONS (3)
  - PRODUCT QUALITY ISSUE [None]
  - MALAISE [None]
  - INCREASED UPPER AIRWAY SECRETION [None]
